FAERS Safety Report 16379376 (Version 2)
Quarter: 2019Q2

REPORT INFORMATION
  Report Type: Report from Study
  Country: US (occurrence: US)
  Receive Date: 20190531
  Receipt Date: 20190613
  Transmission Date: 20190711
  Serious: Yes (Hospitalization)
  Sender: FDA-Public Use
  Company Number: US-ACTELION-A-NJ2018-174301

PATIENT
  Age: 38 Year
  Sex: Male
  Weight: 90.7 kg

DRUGS (1)
  1. OPSUMIT [Suspect]
     Active Substance: MACITENTAN
     Indication: PULMONARY HYPERTENSION
     Dosage: 10 MG, QD
     Route: 048

REACTIONS (11)
  - Pulmonary arterial hypertension [Unknown]
  - Swelling [Unknown]
  - Feeling abnormal [Unknown]
  - Unevaluable event [Unknown]
  - Dizziness [Unknown]
  - Hospitalisation [Unknown]
  - Loss of consciousness [Unknown]
  - Syncope [Unknown]
  - Right ventricular failure [Unknown]
  - Dyspnoea [Unknown]
  - Fluid retention [Unknown]

NARRATIVE: CASE EVENT DATE: 20180616
